FAERS Safety Report 8041459 (Version 5)
Quarter: 2012Q4

REPORT INFORMATION
  Report Type: Report from Study
  Country: US (occurrence: US)
  Receive Date: 20110718
  Receipt Date: 20121016
  Transmission Date: 20130627
  Serious: Yes (Hospitalization, Other)
  Sender: FDA-Public Use
  Company Number: US-JNJFOC-20110703742

PATIENT
  Age: 9 Year
  Sex: Female
  Weight: 23.4 kg

DRUGS (13)
  1. REMICADE [Suspect]
     Indication: CROHN^S DISEASE
     Route: 042
     Dates: start: 20110427
  2. REMICADE [Suspect]
     Indication: CROHN^S DISEASE
     Route: 042
     Dates: start: 20110309
  3. REMICADE [Suspect]
     Indication: INFLAMMATORY BOWEL DISEASE
     Route: 042
     Dates: start: 20110427
  4. REMICADE [Suspect]
     Indication: INFLAMMATORY BOWEL DISEASE
     Route: 042
     Dates: start: 20110309
  5. 5-ASA [Concomitant]
  6. ENTOCORT [Concomitant]
  7. CLONIDINE [Concomitant]
  8. OMEPRAZOLE [Concomitant]
  9. CONCERTA [Concomitant]
  10. ALBUTEROL [Concomitant]
  11. PULMICORT [Concomitant]
  12. MIRALAX [Concomitant]
  13. PENTASA [Concomitant]

REACTIONS (1)
  - Sydenham^s chorea [Recovered/Resolved]
